FAERS Safety Report 20949485 (Version 1)
Quarter: 2022Q2

REPORT INFORMATION
  Report Type: Spontaneous
  Country: AU (occurrence: AU)
  Receive Date: 20220613
  Receipt Date: 20220613
  Transmission Date: 20220720
  Serious: Yes (Death, Hospitalization, Other)
  Sender: FDA-Public Use
  Company Number: AU-GENERIC HEALTH PTY. LTD.-2022-08349

PATIENT
  Age: 54 Year
  Sex: Male

DRUGS (4)
  1. OXYCODONE [Suspect]
     Active Substance: OXYCODONE
     Indication: Pain management
     Dosage: UNK UNK, PRN (5-10 MG 4-HOURLY)
     Route: 048
  2. FENTANYL [Suspect]
     Active Substance: FENTANYL
     Indication: Pain management
     Dosage: 20 MICROGRAM PER MILLILITRE (60 ML)
     Route: 065
  3. ROPIVACAINE [Suspect]
     Active Substance: ROPIVACAINE
     Indication: Pain management
     Dosage: UNK
     Route: 065
  4. FENTANYL [Suspect]
     Active Substance: FENTANYL
     Indication: Pain management
     Dosage: 100 MICROGRAM PER HOUR
     Route: 062

REACTIONS (4)
  - Respiratory depression [Fatal]
  - Pneumonia aspiration [Fatal]
  - Toxicity to various agents [Fatal]
  - Wrong patient received product [Fatal]
